FAERS Safety Report 17081167 (Version 1)
Quarter: 2019Q4

REPORT INFORMATION
  Report Type: Spontaneous
  Country: US (occurrence: US)
  Receive Date: 20191127
  Receipt Date: 20191127
  Transmission Date: 20200122
  Serious: Yes (Other)
  Sender: FDA-Public Use
  Company Number: US-CELLTRION-2019-US-021773

PATIENT
  Age: 84 Year
  Sex: Male

DRUGS (2)
  1. ROPINIROLE HCL TABLETS EQ 1MG BASE [Suspect]
     Active Substance: ROPINIROLE HYDROCHLORIDE
     Indication: RESTLESS LEGS SYNDROME
     Dosage: 1 MG DAILY TITRATED TO 3 MG DAILY WITHIN 1 WEEK
     Route: 065
  2. GABAPENTIN. [Concomitant]
     Active Substance: GABAPENTIN
     Dosage: 300 MG 3 TIMES DAILY

REACTIONS (2)
  - Mood altered [Unknown]
  - Bipolar disorder [Unknown]
